FAERS Safety Report 20909365 (Version 4)
Quarter: 2022Q3

REPORT INFORMATION
  Report Type: Report from Study
  Country: JP (occurrence: JP)
  Receive Date: 20220603
  Receipt Date: 20220803
  Transmission Date: 20221026
  Serious: Yes (Death)
  Sender: FDA-Public Use
  Company Number: JP-ABBVIE-22K-087-4420600-00

PATIENT
  Age: 71 Year
  Sex: Male
  Weight: 50.9 kg

DRUGS (5)
  1. VENCLEXTA [Suspect]
     Active Substance: VENETOCLAX
     Indication: Acute myeloid leukaemia
     Route: 048
     Dates: start: 20210428, end: 20210428
  2. VENCLEXTA [Suspect]
     Active Substance: VENETOCLAX
     Route: 048
     Dates: start: 20210429, end: 20210429
  3. VENCLEXTA [Suspect]
     Active Substance: VENETOCLAX
     Route: 048
     Dates: start: 20210430, end: 2021
  4. VENCLEXTA [Suspect]
     Active Substance: VENETOCLAX
     Route: 048
     Dates: start: 2021
  5. AZACITIDINE [Concomitant]
     Active Substance: AZACITIDINE
     Indication: Acute myeloid leukaemia
     Route: 050
     Dates: start: 20210426, end: 20210502

REACTIONS (1)
  - Septic shock [Fatal]

NARRATIVE: CASE EVENT DATE: 20210703
